FAERS Safety Report 7077753-X (Version None)
Quarter: 2010Q4

REPORT INFORMATION
  Report Type: 
  Country: None (occurrence: None)
  Receive Date: 20101101
  Receipt Date: 20100921
  Transmission Date: 20110411
  Serious: Yes (Other)
  Sender: FDA-Public Use
  Company Number: PHHY2010BR72002

PATIENT
  Age: 60 Year
  Sex: Female
  Weight: 121.9 kg

DRUGS (11)
  1. METFORMIN, VILDAGLIPTIN [Suspect]
     Dosage: 50/850 MG
  2. METFORMIN HCL [Suspect]
     Dosage: 500 MG
  3. HYDROCHLOROTHIAZIDE [Suspect]
  4. VALSARTAN [Suspect]
     Dosage: 160 MG
  5. VALSARTAN [Suspect]
     Dosage: 320 MG
  6. PIOGLITAZONE [Concomitant]
     Dosage: 30MG AFTER BRFEAKFAST
  7. JANUVIA [Concomitant]
     Dosage: 100 MG BEFORE BREAKFAST
  8. HYDROCHLORIDE AMIGLORIDA [Concomitant]
     Dosage: 25 / 2.5 MG
  9. SIMVASTATIN [Concomitant]
     Dosage: 20 MG
  10. SITAGLIPTIN [Concomitant]
     Dosage: 100 MG BEFORE BREAKFAST
  11. EXENATIDE [Concomitant]

REACTIONS (11)
  - ASTHENIA [None]
  - BLOOD PRESSURE INADEQUATELY CONTROLLED [None]
  - DIABETES MELLITUS INADEQUATE CONTROL [None]
  - GLYCOSYLATED HAEMOGLOBIN INCREASED [None]
  - HYPERHIDROSIS [None]
  - MALAISE [None]
  - PRURITUS [None]
  - RASH MACULAR [None]
  - RASH PAPULAR [None]
  - RETINOPATHY HYPERTENSIVE [None]
  - SKIN LESION [None]
